FAERS Safety Report 6898083-2 (Version None)
Quarter: 2010Q3

REPORT INFORMATION
  Report Type: 
  Country: None (occurrence: None)
  Receive Date: 20100802
  Receipt Date: 20070919
  Transmission Date: 20110219
  Serious: No
  Sender: FDA-Public Use
  Company Number: US-PFIZER INC-2007051425

PATIENT
  Sex: Male

DRUGS (2)
  1. LYRICA [Suspect]
     Indication: PROCEDURAL PAIN
     Route: 048
     Dates: start: 20070701
  2. LYRICA [Suspect]
     Indication: PAIN IN JAW

REACTIONS (3)
  - DISORIENTATION [None]
  - DISTURBANCE IN ATTENTION [None]
  - FEELING ABNORMAL [None]
